FAERS Safety Report 7757614-0 (Version None)
Quarter: 2011Q3

REPORT INFORMATION
  Report Type: 
  Country: None (occurrence: None)
  Receive Date: 20110916
  Receipt Date: 20110913
  Transmission Date: 20111222
  Serious: Yes (Other)
  Sender: FDA-Public Use
  Company Number: US-PFIZER INC-2011216523

PATIENT
  Sex: Female
  Weight: 60.771 kg

DRUGS (1)
  1. GEODON [Suspect]
     Indication: BIPOLAR DISORDER
     Dosage: 60 MG, DAILY
     Dates: start: 20110909, end: 20110910

REACTIONS (6)
  - PYREXIA [None]
  - MOVEMENT DISORDER [None]
  - DIZZINESS [None]
  - FEELING ABNORMAL [None]
  - APHAGIA [None]
  - HYPERTENSION [None]
